FAERS Safety Report 4711583-6 (Version None)
Quarter: 2005Q3

REPORT INFORMATION
  Report Type: 
  Country: None (occurrence: None)
  Receive Date: 20050708
  Receipt Date: 20050708
  Transmission Date: 20060218
  Serious: Yes (Other)
  Sender: FDA-Public Use
  Company Number: None

PATIENT
  Age: 32 Year
  Sex: Female
  Weight: 79.3795 kg

DRUGS (2)
  1. ALLEGRA [Suspect]
     Indication: SEASONAL ALLERGY
     Dosage: 60    TWICE DAILY   ORAL
     Route: 048
     Dates: start: 20040701, end: 20050406
  2. ALLEGRA [Suspect]
     Indication: SEASONAL ALLERGY
     Dosage: 180   ONE TIME DAILY  ORAL
     Route: 048
     Dates: start: 20050430, end: 20050707

REACTIONS (2)
  - LYMPHADENOPATHY [None]
  - THERAPY NON-RESPONDER [None]
